FAERS Safety Report 23865075 (Version 1)
Quarter: 2024Q2

REPORT INFORMATION
  Report Type: Spontaneous
  Country: US (occurrence: US)
  Receive Date: 20240516
  Receipt Date: 20240516
  Transmission Date: 20240715
  Serious: Yes (Other)
  Sender: FDA-Public Use
  Company Number: US-PIRAMAL CRITICAL CARE LIMITED-2024-PPL-000336

PATIENT

DRUGS (23)
  1. BACLOFEN [Suspect]
     Active Substance: BACLOFEN
     Indication: Muscle spasticity
     Dosage: 600 MICROGRAM/DAY
     Route: 037
  2. BACLOFEN [Suspect]
     Active Substance: BACLOFEN
     Indication: Dystonia
     Dosage: 425 MICROGRAM/DAY
     Route: 037
  3. BACLOFEN [Suspect]
     Active Substance: BACLOFEN
     Dosage: 423.7 MICROGRAM/DAY
     Route: 037
  4. MORPHINE [Concomitant]
     Active Substance: MORPHINE
     Indication: Pain
     Dosage: 0.064 MILLIGRAM/DAY
     Route: 037
  5. CYPROHEPTADINE [Concomitant]
     Active Substance: CYPROHEPTADINE
     Indication: Movement disorder
     Dosage: 0.5 MILLIGRAM, QHS
     Route: 048
  6. CLONAZEPAM [Concomitant]
     Active Substance: CLONAZEPAM
     Indication: Movement disorder
     Dosage: 1 MILLIGRAM
     Route: 048
  7. CLONIDINE [Concomitant]
     Active Substance: CLONIDINE
     Indication: Movement disorder
     Dosage: 0.1 MILLIGRAM, QHS
     Route: 048
  8. CLONIDINE [Concomitant]
     Active Substance: CLONIDINE
     Dosage: 0.2 MG QHS
     Route: 048
  9. CLONIDINE [Concomitant]
     Active Substance: CLONIDINE
     Dosage: UNK
     Route: 037
  10. GABAPENTIN [Concomitant]
     Active Substance: GABAPENTIN
     Indication: Movement disorder
     Dosage: 600 MILLIGRAM
     Route: 048
  11. GABAPENTIN [Concomitant]
     Active Substance: GABAPENTIN
     Dosage: 600 MILLIGRAM, TID,
     Route: 048
  12. MORPHINE [Concomitant]
     Active Substance: MORPHINE
     Indication: Movement disorder
     Dosage: 7.5 MILLIGRAM
     Route: 048
  13. BOTOX [Concomitant]
     Active Substance: ONABOTULINUMTOXINA
     Indication: Product used for unknown indication
     Dosage: BOTOX 500 UNITS - SOLEUS - LEFT FLEXOR CARPI RADIALIS
  14. TRIHEXYPHENIDYL [Concomitant]
     Active Substance: TRIHEXYPHENIDYL
     Indication: Movement disorder
     Dosage: 2 MILLIGRAM, TID
     Route: 048
  15. CARBIDOPA AND LEVODOPA [Concomitant]
     Active Substance: CARBIDOPA\LEVODOPA
     Indication: Movement disorder
     Dosage: CARBIDOPA 25-LEVODOPA 100
     Route: 048
  16. CARBIDOPA AND LEVODOPA [Concomitant]
     Active Substance: CARBIDOPA\LEVODOPA
     Dosage: CARBIDOPA 25-LEVODOPA 100 2 TABS BID
     Route: 048
  17. TIZANIDINE [Concomitant]
     Active Substance: TIZANIDINE
     Indication: Movement disorder
     Dosage: 2 MILLIGRAM, TID
     Route: 048
  18. DIAZEPAM [Concomitant]
     Active Substance: DIAZEPAM
     Indication: Movement disorder
     Dosage: 8 MILLIGRAM, QID PRN
     Route: 048
  19. DIAZEPAM [Concomitant]
     Active Substance: DIAZEPAM
     Dosage: 8MG QID PRN
     Route: 048
  20. NORTRIPTYLINE [Concomitant]
     Active Substance: NORTRIPTYLINE
     Indication: Movement disorder
     Dosage: 20 MILLIGRAM, QHS
     Route: 048
  21. NORTRIPTYLINE [Concomitant]
     Active Substance: NORTRIPTYLINE
     Dosage: 30 MILLIGRAM, QHS
     Route: 048
  22. BUPIVACAINE [Concomitant]
     Active Substance: BUPIVACAINE
     Indication: Dystonia
     Dosage: 2.123 MILLIGRAM/DAY
     Route: 037
  23. BUPIVACAINE [Concomitant]
     Active Substance: BUPIVACAINE
     Indication: Muscle spasticity
     Dosage: 2.12 MILLIGRAM/DAY
     Route: 037

REACTIONS (2)
  - Paradoxical drug reaction [Unknown]
  - Off label use [Unknown]
